FAERS Safety Report 21009857 (Version 1)
Quarter: 2022Q2

REPORT INFORMATION
  Report Type: Spontaneous
  Country: US (occurrence: US)
  Receive Date: 20220627
  Receipt Date: 20220627
  Transmission Date: 20220721
  Serious: Yes (Other)
  Sender: FDA-Public Use
  Company Number: US-PFIZER INC-2021138355

PATIENT
  Age: 82 Year
  Sex: Female

DRUGS (1)
  1. XELJANZ [Suspect]
     Active Substance: TOFACITINIB CITRATE
     Indication: Rheumatoid arthritis
     Dosage: 5 MG, 2X/DAY (ONE TABLET IN THE MORNING AND ONE IN THE EVENING)
     Route: 048
     Dates: start: 2019

REACTIONS (4)
  - Thrombosis [Unknown]
  - Hypotension [Not Recovered/Not Resolved]
  - Fall [Unknown]
  - Body height decreased [Unknown]

NARRATIVE: CASE EVENT DATE: 20220101
